FAERS Safety Report 13998128 (Version 2)
Quarter: 2017Q3

REPORT INFORMATION
  Report Type: Report from Study
  Country: DE (occurrence: CO)
  Receive Date: 20170921
  Receipt Date: 20170925
  Transmission Date: 20171128
  Serious: Yes (Death, Hospitalization, Other)
  Sender: FDA-Public Use
  Company Number: DE-ACTELION-A-US2017-159706

PATIENT
  Age: 72 Year
  Sex: Female

DRUGS (5)
  1. CLOPIDOGREL [Concomitant]
     Active Substance: CLOPIDOGREL BISULFATE
  2. LOSARTAN. [Concomitant]
     Active Substance: LOSARTAN
     Dosage: UNK
  3. VENTAVIS [Suspect]
     Active Substance: ILOPROST
     Dosage: UNK, 6X/DAY
     Route: 055
     Dates: end: 20170917
  4. OXYGEN. [Concomitant]
     Active Substance: OXYGEN
     Dosage: UNK
     Dates: start: 201602
  5. VENTAVIS [Suspect]
     Active Substance: ILOPROST
     Indication: PULMONARY HYPERTENSION
     Dosage: 4 DF, QD
     Route: 055
     Dates: start: 20160220

REACTIONS (13)
  - Disease progression [Fatal]
  - Dry throat [Unknown]
  - Asphyxia [Recovered/Resolved]
  - Pain [Not Recovered/Not Resolved]
  - Condition aggravated [Not Recovered/Not Resolved]
  - Headache [Not Recovered/Not Resolved]
  - Fatigue [Unknown]
  - Coronary artery occlusion [Recovering/Resolving]
  - Agitation [Not Recovered/Not Resolved]
  - Throat irritation [Unknown]
  - Product use issue [Unknown]
  - Pulmonary hypertension [Fatal]
  - Inappropriate prescribing [Unknown]
